FAERS Safety Report 8524571-9 (Version None)
Quarter: 2012Q2

REPORT INFORMATION
  Report Type: 
  Country: None (occurrence: None)
  Receive Date: 20120406
  Receipt Date: 20110719
  Transmission Date: 20120825
  Serious: Yes (Other)
  Sender: FDA-Public Use
  Company Number: US-2011-10497

PATIENT
  Age: 5 Year
  Sex: Male

DRUGS (7)
  1. FLUDARABINE PHOSPHATE [Suspect]
     Indication: STEM CELL TRANSPLANT
     Dosage: 40 MG/M2, DAILY DOSE, INTRAVENOUS
     Route: 042
  2. TACROLIMUS [Concomitant]
  3. ADENOVIRUS TEST POSITIVE [Concomitant]
  4. PALIFERMIN (PALIFEMIN) [Concomitant]
  5. ANTI-THYMOCYTE GLOBULIN NOS [Concomitant]
  6. BUSULFEX [Suspect]
     Indication: STEM CELL TRANSPLANT
     Dosage: 0.8 MG/KG, DAILY DOSE, INTRAVENOUS
     Route: 042
  7. MYCOPHENOLIC ACID [Concomitant]

REACTIONS (4)
  - HUMAN HERPES VIRUS 6 SEROLOGY [None]
  - ENCEPHALOPATHY [None]
  - GRAFT VERSUS HOST DISEASE IN SKIN [None]
  - ADENOVIRUS TEST POSITIVE [None]
